FAERS Safety Report 8480512-4 (Version None)
Quarter: 2012Q3

REPORT INFORMATION
  Report Type: 
  Country: None (occurrence: None)
  Receive Date: 20120702
  Receipt Date: 20120625
  Transmission Date: 20120928
  Serious: No
  Sender: FDA-Public Use
  Company Number: US-BIOGENIDEC-2012BI020620

PATIENT
  Age: 45 Year
  Sex: Female

DRUGS (4)
  1. TYSABRI [Suspect]
     Indication: MULTIPLE SCLEROSIS
     Route: 042
     Dates: start: 20120604
  2. ZOLOFT [Concomitant]
     Indication: DEPRESSION
  3. MULTI-VITAMINS [Concomitant]
  4. CLONOPIN [Concomitant]
     Indication: INSOMNIA

REACTIONS (11)
  - DYSPNOEA [None]
  - COUGH [None]
  - CHEST DISCOMFORT [None]
  - DRY THROAT [None]
  - APHONIA [None]
  - BRONCHITIS [None]
  - URTICARIA [None]
  - NASAL CONGESTION [None]
  - TONGUE DRY [None]
  - OROPHARYNGEAL PAIN [None]
  - CHEST PAIN [None]
